FAERS Safety Report 19916158 (Version 1)
Quarter: 2021Q4

REPORT INFORMATION
  Report Type: Spontaneous
  Country: US (occurrence: US)
  Receive Date: 20211004
  Receipt Date: 20211004
  Transmission Date: 20220303
  Serious: No
  Sender: FDA-Public Use
  Company Number: US-OTSUKA-2020_027557

PATIENT
  Age: 46 Year
  Sex: Female

DRUGS (2)
  1. ABILIFY MAINTENA [Suspect]
     Active Substance: ARIPIPRAZOLE
     Indication: Product used for unknown indication
     Dosage: 400 MG, UNK
     Route: 030
     Dates: start: 202002
  2. ARIPIPRAZOLE [Suspect]
     Active Substance: ARIPIPRAZOLE
     Indication: Product used for unknown indication
     Dosage: 10 MG, UNK
     Route: 065

REACTIONS (3)
  - Abnormal behaviour [Not Recovered/Not Resolved]
  - Product administration error [Unknown]
  - Refusal of treatment by patient [Unknown]

NARRATIVE: CASE EVENT DATE: 20200101
